FAERS Safety Report 6308454-0 (Version None)
Quarter: 2009Q3

REPORT INFORMATION
  Report Type: 
  Country: None (occurrence: None)
  Receive Date: 20090813
  Receipt Date: 20090804
  Transmission Date: 20100115
  Serious: Yes (Other)
  Sender: FDA-Public Use
  Company Number: PHHY2009BR32563

PATIENT
  Sex: Female
  Weight: 56 kg

DRUGS (9)
  1. ACLASTA [Suspect]
     Indication: OSTEOPOROSIS
     Dosage: ANUALLY
     Dates: start: 20080801
  2. CALCIUM CARBONATE W/COLECALCIFEROL [Suspect]
     Route: 048
  3. CALCIUM CARBONATE W/COLECALCIFEROL [Suspect]
     Dosage: 2 TABLETS PER DAY
  4. SIMVASTATIN [Concomitant]
     Dosage: 10 MG, QD
     Dates: start: 20070101
  5. SIMVASTATIN [Concomitant]
     Dosage: 20 MG, QD
     Dates: end: 20090301
  6. RYTMONORM [Concomitant]
     Dosage: 300 MG, QD
  7. CAPTOPRIL [Concomitant]
     Dosage: 1 TABLET/DAY
     Dates: start: 20070101
  8. CAPTOPRIL [Concomitant]
     Dosage: 2 TABLETS/DAY
     Dates: end: 20090301
  9. ARADOIS [Concomitant]
     Dosage: 1/2 TABLET IN THE MORNING AND NIGHT
     Dates: start: 20090301

REACTIONS (5)
  - ANKLE FRACTURE [None]
  - BLOOD CHOLESTEROL INCREASED [None]
  - COUGH [None]
  - FALL [None]
  - IMMOBILISATION PROLONGED [None]
